FAERS Safety Report 7967601-5 (Version None)
Quarter: 2011Q4

REPORT INFORMATION
  Report Type: 
  Country: None (occurrence: None)
  Receive Date: 20111207
  Receipt Date: 20111128
  Transmission Date: 20120403
  Serious: Yes (Other)
  Sender: FDA-Public Use
  Company Number: 126936

PATIENT
  Age: 64 Year
  Sex: Female

DRUGS (5)
  1. TEMAZEPAM [Concomitant]
  2. DOCUSATE [Concomitant]
  3. LISINOPRIL [Concomitant]
  4. HYDROMORPHONE HCL [Concomitant]
  5. METHOTREXATE [Suspect]
     Indication: ARTHRITIS
     Dosage: 25MG SUBCUTANEOUSLY EVERY WEDNESDAY

REACTIONS (3)
  - INJECTION SITE DISCOMFORT [None]
  - MEDICATION ERROR [None]
  - INJECTION SITE PAIN [None]
